FAERS Safety Report 18476242 (Version 1)
Quarter: 2020Q4

REPORT INFORMATION
  Report Type: Spontaneous
  Country: FR (occurrence: FR)
  Receive Date: 20201106
  Receipt Date: 20201106
  Transmission Date: 20210114
  Serious: Yes (Hospitalization, Other)
  Sender: FDA-Public Use
  Company Number: FR-ALXN-A202016186

PATIENT
  Age: 5 Year
  Sex: Male
  Weight: 11.3 kg

DRUGS (1)
  1. STRENSIQ [Suspect]
     Active Substance: ASFOTASE ALFA
     Indication: HYPOPHOSPHATASIA
     Dosage: 60 MG, TIW
     Route: 065
     Dates: start: 20150921

REACTIONS (1)
  - Craniosynostosis [Not Recovered/Not Resolved]

NARRATIVE: CASE EVENT DATE: 20160426
